FAERS Safety Report 6888549-3 (Version None)
Quarter: 2010Q3

REPORT INFORMATION
  Report Type: 
  Country: None (occurrence: None)
  Receive Date: 20100730
  Receipt Date: 20100723
  Transmission Date: 20110219
  Serious: Yes (Other)
  Sender: FDA-Public Use
  Company Number: US-ABBOTT-10P-163-0660050-00

PATIENT
  Sex: Male
  Weight: 83.082 kg

DRUGS (10)
  1. NIASPAN [Suspect]
     Indication: HYPERLIPIDAEMIA
     Route: 048
     Dates: start: 20030701
  2. METOPROLOL TARTRATE [Concomitant]
     Indication: HYPERTENSION
     Dosage: DAILY
     Route: 048
  3. METOPROLOL TARTRATE [Concomitant]
     Indication: PROPHYLAXIS
  4. LISINOPRIL [Concomitant]
     Indication: HYPERTENSION
     Route: 048
  5. LISINOPRIL [Concomitant]
     Indication: PROPHYLAXIS
  6. ASPIRIN [Concomitant]
     Indication: CARDIOVASCULAR EVENT PROPHYLAXIS
     Route: 048
  7. LIPITOR [Concomitant]
     Indication: PRODUCT USED FOR UNKNOWN INDICATION
     Route: 048
  8. FOLIC ACID [Concomitant]
     Indication: PRODUCT USED FOR UNKNOWN INDICATION
     Dosage: DAILY
     Route: 048
  9. HUMULIN N [Concomitant]
     Indication: DIABETES MELLITUS
     Dosage: THREE TIMES DAILY
     Route: 058
  10. HUMULIN R [Concomitant]
     Indication: DIABETES MELLITUS
     Dosage: THREE TIMES DAILY
     Route: 058

REACTIONS (3)
  - BLINDNESS [None]
  - GLAUCOMA [None]
  - VISUAL IMPAIRMENT [None]
